FAERS Safety Report 21178824 (Version 1)
Quarter: 2022Q3

REPORT INFORMATION
  Report Type: Spontaneous
  Country: US (occurrence: US)
  Receive Date: 20220805
  Receipt Date: 20220805
  Transmission Date: 20221027
  Serious: No
  Sender: FDA-Public Use
  Company Number: US-JAZZ-2022-US-017398

PATIENT
  Sex: Female

DRUGS (4)
  1. XYREM [Suspect]
     Active Substance: SODIUM OXYBATE
     Indication: Narcolepsy
     Dosage: 4.5 GRAMS FOR THE FIRST DOSE, THEN 3.75 GRAMS FOR THE SECOND DOSE
     Dates: start: 2009
  2. ARMODAFINIL [Concomitant]
     Active Substance: ARMODAFINIL
     Indication: Narcolepsy
  3. METHYLPHENIDATE [Concomitant]
     Active Substance: METHYLPHENIDATE
     Indication: Narcolepsy
     Dosage: UNK
  4. TARINA 24 FE [Concomitant]
     Active Substance: ETHINYL ESTRADIOL\FERROUS FUMARATE\NORETHINDRONE ACETATE
     Indication: Contraception

REACTIONS (2)
  - Nausea [Unknown]
  - Weight decreased [Unknown]
